FAERS Safety Report 4443016-1 (Version None)
Quarter: 2004Q3

REPORT INFORMATION
  Report Type: 
  Country: None (occurrence: None)
  Receive Date: 20040903
  Receipt Date: 20040528
  Transmission Date: 20050211
  Serious: Yes (Other)
  Sender: FDA-Public Use
  Company Number: 2004UW11189

PATIENT
  Age: 57 Year
  Sex: Female
  Weight: 90.7194 kg

DRUGS (18)
  1. CRESTOR [Suspect]
     Dosage: 10 MG PO
     Route: 048
  2. SYNTHROID [Concomitant]
  3. LEXAPRO [Concomitant]
  4. LISINOPRIL [Concomitant]
  5. BENTYL [Concomitant]
  6. CLONAZEPAM [Concomitant]
  7. ALLEGRA [Concomitant]
  8. NEXIUM [Concomitant]
  9. SINGULAIR [Concomitant]
  10. ASACOL [Concomitant]
  11. POTASSIUM [Concomitant]
  12. VITAMIN E [Concomitant]
  13. VITAMIN B6 [Concomitant]
  14. ACETYLSALICYLIC ACID [Concomitant]
  15. ALPRAZOLAM [Concomitant]
  16. HYDROCODONE [Concomitant]
  17. HISTINEX D [Concomitant]
  18. AFRIN [Concomitant]

REACTIONS (2)
  - HYPERHIDROSIS [None]
  - PRURITUS [None]
